FAERS Safety Report 25011291 (Version 2)
Quarter: 2025Q1

REPORT INFORMATION
  Report Type: Spontaneous
  Country: RU (occurrence: RU)
  Receive Date: 20250226
  Receipt Date: 20250325
  Transmission Date: 20250409
  Serious: Yes (Death)
  Sender: JOHNSON AND JOHNSON
  Company Number: RU-JNJFOC-20250266827

PATIENT
  Sex: Female

DRUGS (1)
  1. UPTRAVI [Suspect]
     Active Substance: SELEXIPAG
     Indication: Product used for unknown indication
     Route: 048
     Dates: start: 202410

REACTIONS (1)
  - Death [Fatal]
